FAERS Safety Report 6639874-2 (Version None)
Quarter: 2010Q1

REPORT INFORMATION
  Report Type: 
  Country: None (occurrence: None)
  Receive Date: 20100318
  Receipt Date: 20100308
  Transmission Date: 20100710
  Serious: Yes (Death)
  Sender: FDA-Public Use
  Company Number: IE-GENZYME-CLOF-1000843

PATIENT
  Sex: Male
  Weight: 29.6 kg

DRUGS (7)
  1. EVOLTRA [Suspect]
     Indication: ACUTE LYMPHOCYTIC LEUKAEMIA
     Dosage: 40 MG/M2, QDX5
     Dates: start: 20090618, end: 20090622
  2. EVOLTRA [Suspect]
  3. CYCLOPHOSPHAMIDE [Suspect]
     Indication: ACUTE LYMPHOCYTIC LEUKAEMIA
     Dosage: 300 MG/M2, QDX5
     Route: 042
     Dates: start: 20090618, end: 20090622
  4. ETOPOSIDE [Suspect]
     Indication: ACUTE LYMPHOCYTIC LEUKAEMIA
     Dosage: 100 MG/M2, QDX5
     Route: 042
     Dates: start: 20090618, end: 20090622
  5. PEG-ASPARAGINASE [Suspect]
     Indication: ACUTE LYMPHOCYTIC LEUKAEMIA
     Dosage: 1000 OTHER, ONCE
     Route: 030
     Dates: start: 20090702, end: 20090702
  6. DEXAMETHASONE [Suspect]
     Indication: ACUTE LYMPHOCYTIC LEUKAEMIA
     Dosage: 10 MG/M2, UNK
     Route: 048
     Dates: start: 20090618, end: 20090624
  7. DEXAMETHASONE [Suspect]
     Dosage: 10 MG/M2, BID
     Route: 048
     Dates: start: 20090702, end: 20090708

REACTIONS (2)
  - ADENOVIRUS INFECTION [None]
  - MICROANGIOPATHY [None]
